FAERS Safety Report 9249634 (Version 2)
Quarter: 2013Q3

REPORT INFORMATION
  Report Type: Spontaneous
  Country: US (occurrence: US)
  Receive Date: 20130423
  Receipt Date: 20130717
  Transmission Date: 20140515
  Serious: No
  Sender: FDA-Public Use
  Company Number: US-BRISTOL-MYERS SQUIBB COMPANY-17338898

PATIENT
  Age: 50 Year
  Sex: Female
  Weight: 77.1 kg

DRUGS (4)
  1. YERVOY [Suspect]
     Indication: METASTATIC MALIGNANT MELANOMA
     Dosage: LAST INFUSION  5 WEEKS AGO.
     Dates: start: 201212
  2. LEXAPRO [Concomitant]
  3. HCTZ [Concomitant]
  4. PHENERGAN [Concomitant]
     Indication: ABDOMINAL DISCOMFORT

REACTIONS (3)
  - Diarrhoea [Recovered/Resolved]
  - Weight decreased [Recovering/Resolving]
  - Chest pain [Recovered/Resolved]
